FAERS Safety Report 24732004 (Version 1)
Quarter: 2024Q4

REPORT INFORMATION
  Report Type: Spontaneous
  Country: RU (occurrence: RU)
  Receive Date: 20241213
  Receipt Date: 20241213
  Transmission Date: 20250114
  Serious: Yes (Other)
  Sender: TORRENT PHARMA INC.
  Company Number: RU-TORRENT-00000097

PATIENT
  Age: 8 Year
  Sex: Male

DRUGS (1)
  1. TOPIRAMATE [Suspect]
     Active Substance: TOPIRAMATE
     Indication: Lennox-Gastaut syndrome
     Dosage: UNKNOWN
     Route: 065

REACTIONS (2)
  - Lennox-Gastaut syndrome [Unknown]
  - Condition aggravated [Unknown]
